FAERS Safety Report 12245635 (Version 1)
Quarter: 2016Q2

REPORT INFORMATION
  Report Type: Spontaneous
  Country: US (occurrence: US)
  Receive Date: 20160407
  Receipt Date: 20160407
  Transmission Date: 20160815
  Serious: No
  Sender: FDA-Public Use
  Company Number: US-GLAXOSMITHKLINE-US2016GSK041842

PATIENT
  Sex: Female
  Weight: 68.27 kg

DRUGS (2)
  1. LAMOTRIGINE. [Suspect]
     Active Substance: LAMOTRIGINE
     Indication: BIPOLAR DISORDER
     Dosage: UNK
  2. XANAX [Concomitant]
     Active Substance: ALPRAZOLAM
     Indication: ANXIETY
     Dosage: 2 MG TABLET, TID
     Dates: start: 1995

REACTIONS (4)
  - Drug ineffective [Unknown]
  - Rash [Unknown]
  - Drug hypersensitivity [Unknown]
  - Condition aggravated [Unknown]
